FAERS Safety Report 14160090 (Version 1)
Quarter: 2017Q4

REPORT INFORMATION
  Report Type: Spontaneous
  Country: JP (occurrence: JP)
  Receive Date: 20171106
  Receipt Date: 20171106
  Transmission Date: 20180321
  Serious: Yes (Other)
  Sender: FDA-Public Use
  Company Number: JP-SUN PHARMACEUTICAL INDUSTRIES LTD-2017R1-154013

PATIENT
  Age: 39 Year
  Sex: Female

DRUGS (4)
  1. SULFASALAZINE. [Suspect]
     Active Substance: SULFASALAZINE
     Indication: PALISADED NEUTROPHILIC GRANULOMATOUS DERMATITIS
     Dosage: UNK
     Route: 065
  2. SULFASALAZINE. [Suspect]
     Active Substance: SULFASALAZINE
     Indication: POLYARTHRITIS
  3. METHOTREXATE. [Suspect]
     Active Substance: METHOTREXATE
     Indication: POLYARTHRITIS
  4. METHOTREXATE. [Suspect]
     Active Substance: METHOTREXATE
     Indication: PALISADED NEUTROPHILIC GRANULOMATOUS DERMATITIS
     Dosage: UNK
     Route: 065

REACTIONS (3)
  - Mycobacterium marinum infection [Recovering/Resolving]
  - Arthritis bacterial [Recovering/Resolving]
  - Tenosynovitis [Recovering/Resolving]
